FAERS Safety Report 8827006 (Version 5)
Quarter: 2013Q3

REPORT INFORMATION
  Report Type: Report from Study
  Country: BR (occurrence: BR)
  Receive Date: 20121007
  Receipt Date: 20130719
  Transmission Date: 20140515
  Serious: Yes (Death, Hospitalization, Other)
  Sender: FDA-Public Use
  Company Number: BR-ELI_LILLY_AND_COMPANY-BR201209007298

PATIENT
  Age: 86 Year
  Sex: Female
  Weight: 43 kg

DRUGS (6)
  1. TERIPARATIDE [Suspect]
     Indication: OSTEOPOROSIS
     Dosage: 20 UG, QD
     Route: 058
     Dates: start: 2012
  2. LABIRIN [Concomitant]
     Indication: LABYRINTHITIS
     Dosage: UNK, UNKNOWN
     Route: 065
  3. MAREVAN [Concomitant]
     Indication: THROMBOSIS
     Dosage: UNK, UNKNOWN
     Route: 065
  4. BENERVA [Concomitant]
     Dosage: UNK, UNKNOWN
     Route: 065
  5. INSULIN NPH [Concomitant]
     Indication: DIABETES MELLITUS
     Dosage: UNK, UNKNOWN
     Route: 065
  6. INSULIN REGULAR                    /01223201/ [Concomitant]
     Dosage: UNK, UNKNOWN
     Route: 065

REACTIONS (12)
  - Pulmonary oedema [Fatal]
  - Diabetes mellitus [Not Recovered/Not Resolved]
  - Thrombosis [Recovered/Resolved]
  - Dementia [Unknown]
  - Respiratory disorder [Unknown]
  - Limb injury [Unknown]
  - Peripheral vascular disorder [Unknown]
  - Urinary tract infection [Unknown]
  - Peripheral vascular disorder [Unknown]
  - Weight decreased [Unknown]
  - Confusional state [Unknown]
  - Hypoglycaemia [Recovered/Resolved]
